FAERS Safety Report 7321173-7 (Version None)
Quarter: 2011Q1

REPORT INFORMATION
  Report Type: 
  Country: None (occurrence: None)
  Receive Date: 20110228
  Receipt Date: 20110221
  Transmission Date: 20110831
  Serious: Yes (Other)
  Sender: FDA-Public Use
  Company Number: US-PFIZER INC-2011037855

PATIENT
  Sex: Male
  Weight: 89.342 kg

DRUGS (9)
  1. HECTOROL [Concomitant]
     Dosage: UNK
  2. MAGNESIUM [Concomitant]
     Dosage: UNK
  3. FISH OIL [Concomitant]
     Dosage: UNK
  4. ROBITUSSIN DM [Suspect]
     Indication: NASOPHARYNGITIS
     Dosage: 2 TEASPOONS, 3X/DAY
     Route: 048
     Dates: start: 20110218, end: 20110219
  5. ROBITUSSIN DM [Suspect]
     Indication: COUGH
  6. METOPROLOL [Concomitant]
     Dosage: UNK
  7. NEXIUM [Concomitant]
     Dosage: UNK
  8. ALLOPURINOL [Concomitant]
     Dosage: UNK
  9. RAMIPRIL [Concomitant]
     Dosage: UNK

REACTIONS (3)
  - RASH GENERALISED [None]
  - RASH PAPULAR [None]
  - ORAL INFECTION [None]
